FAERS Safety Report 7773322-4 (Version None)
Quarter: 2011Q3

REPORT INFORMATION
  Report Type: 
  Country: None (occurrence: None)
  Receive Date: 20110922
  Receipt Date: 20110913
  Transmission Date: 20111222
  Serious: Yes (Other)
  Sender: FDA-Public Use
  Company Number: US-CELGENEUS-163-50794-11092531

PATIENT
  Sex: Female
  Weight: 49.032 kg

DRUGS (2)
  1. VIDAZA [Suspect]
     Route: 048
     Dates: start: 20080616
  2. DESFERAL [Concomitant]
     Indication: IRON OVERLOAD
     Route: 065
     Dates: start: 20080714

REACTIONS (1)
  - DEEP VEIN THROMBOSIS [None]
